FAERS Safety Report 11415822 (Version 1)
Quarter: 2015Q3

REPORT INFORMATION
  Report Type: Spontaneous
  Country: US (occurrence: None)
  Receive Date: 20150824
  Receipt Date: 20150824
  Transmission Date: 20151125
  Serious: Yes (Disabling, Other)
  Sender: FDA-Public Use
  Company Number: None

PATIENT
  Age: 29 Year
  Sex: Female

DRUGS (2)
  1. REMICADE [Suspect]
     Active Substance: INFLIXIMAB
     Indication: CROHN^S DISEASE
     Dosage: IV Q 8 WEEKS Q 8 WEEKS INTO A VEIN
     Route: 042
     Dates: start: 20070801, end: 20150626
  2. PROZAC [Concomitant]
     Active Substance: FLUOXETINE HYDROCHLORIDE

REACTIONS (4)
  - No reaction on previous exposure to drug [None]
  - Alopecia [None]
  - Skin fissures [None]
  - Rash [None]

NARRATIVE: CASE EVENT DATE: 20150209
